FAERS Safety Report 12375872 (Version 1)
Quarter: 2016Q2

REPORT INFORMATION
  Report Type: Report from Study
  Country: IN (occurrence: IN)
  Receive Date: 20160517
  Receipt Date: 20160517
  Transmission Date: 20160815
  Serious: Yes (Hospitalization, Other)
  Sender: FDA-Public Use
  Company Number: IN-GLAXOSMITHKLINE-IN2016069191

PATIENT
  Age: 2 Year
  Sex: Female
  Weight: 8 kg

DRUGS (5)
  1. VALPROATE SODIUM. [Concomitant]
     Active Substance: VALPROATE SODIUM
  2. LAMOTRIGINE. [Suspect]
     Active Substance: LAMOTRIGINE
     Indication: CEREBRAL PALSY
     Dosage: FOR WEEKS 1 AND 2
  3. LEVETIRACETAM. [Concomitant]
     Active Substance: LEVETIRACETAM
  4. CLOBAZAM [Concomitant]
     Active Substance: CLOBAZAM
  5. LAMOTRIGINE. [Suspect]
     Active Substance: LAMOTRIGINE
     Indication: SEIZURE
     Dosage: FOR WEEKS 3 AND 4

REACTIONS (1)
  - Drug reaction with eosinophilia and systemic symptoms [Unknown]
